FAERS Safety Report 5498018-3 (Version None)
Quarter: 2007Q4

REPORT INFORMATION
  Report Type: 
  Country: None (occurrence: None)
  Receive Date: 20071025
  Receipt Date: 20071016
  Transmission Date: 20080405
  Serious: Yes (Hospitalization)
  Sender: FDA-Public Use
  Company Number: US-ELI_LILLY_AND_COMPANY-US200710003991

PATIENT
  Age: 59 Year
  Sex: Female

DRUGS (4)
  1. CYMBALTA [Suspect]
     Indication: NEUROPATHY
  2. DEXAMETHASONE 0.5MG TAB [Concomitant]
  3. METHADONE HCL [Concomitant]
  4. LYRICA [Concomitant]

REACTIONS (1)
  - DYSPNOEA [None]
